FAERS Safety Report 6767498-5 (Version None)
Quarter: 2010Q2

REPORT INFORMATION
  Report Type: 
  Country: None (occurrence: None)
  Receive Date: 20100614
  Receipt Date: 20100602
  Transmission Date: 20101027
  Serious: Yes (Hospitalization)
  Sender: FDA-Public Use
  Company Number: PHHY2010SE35872

PATIENT
  Sex: Female

DRUGS (14)
  1. ACLASTA [Suspect]
     Dosage: UNK
     Route: 042
     Dates: start: 20090101
  2. ACLASTA [Suspect]
     Dosage: 5 MG
     Route: 042
     Dates: start: 20100527
  3. HUMIRA [Concomitant]
     Dosage: UNK
  4. MATRIFEN [Concomitant]
     Dosage: 12 MICROG/TIMME, 1/3 DAYS
  5. KALCIPOS-D [Concomitant]
     Dosage: UNK
  6. KALEORID [Concomitant]
     Dosage: 750 MG/ DAY
  7. TROMBYL [Concomitant]
     Dosage: 160 MG/ DAY
  8. EMCONCOR [Concomitant]
     Dosage: 1.25 MG/DAY
  9. PREDNISOLONE [Concomitant]
     Dosage: 7.5 MG/DAY
  10. PULMICORT [Concomitant]
     Dosage: UNK
  11. NULYTELY [Concomitant]
     Dosage: UNK
  12. COZAAR [Concomitant]
     Dosage: UNK
  13. GABAPENTIN [Concomitant]
     Dosage: UNK
  14. ACETAMINOPHEN [Concomitant]
     Dosage: UNK

REACTIONS (5)
  - ARTHRALGIA [None]
  - DIARRHOEA [None]
  - OEDEMA PERIPHERAL [None]
  - PAIN IN EXTREMITY [None]
  - PYREXIA [None]
